FAERS Safety Report 15148354 (Version 2)
Quarter: 2020Q1

REPORT INFORMATION
  Report Type: Spontaneous
  Country: FR (occurrence: FR)
  Receive Date: 20180716
  Receipt Date: 20200302
  Transmission Date: 20200409
  Serious: Yes (Hospitalization)
  Sender: FDA-Public Use
  Company Number: FR-MYLANLABS-2018M1052266

PATIENT
  Age: 61 Year
  Sex: Female
  Weight: 118 kg

DRUGS (12)
  1. PROFENID [Suspect]
     Active Substance: KETOPROFEN
     Indication: POSTOPERATIVE ANALGESIA
     Dosage: 100 MG, UNK
     Route: 042
     Dates: start: 20180315, end: 20180315
  2. MIDAZOLAM PANPHARMA [Concomitant]
     Active Substance: MIDAZOLAM HYDROCHLORIDE
     Indication: GENERAL ANAESTHESIA
     Dosage: 2 MG, UNK
     Route: 042
     Dates: start: 20180315, end: 20180315
  3. PANTOPRAZOLE SODIUM. [Concomitant]
     Active Substance: PANTOPRAZOLE SODIUM
     Indication: PRODUCT USED FOR UNKNOWN INDICATION
     Dosage: 40 MG, QD
     Route: 048
     Dates: start: 20180315, end: 20180319
  4. SUFENTANIL [Concomitant]
     Active Substance: SUFENTANIL
     Indication: GENERAL ANAESTHESIA
     Dosage: 235 G, UNK
     Route: 042
     Dates: start: 20180315, end: 20180315
  5. VANCOMYCINE MYLAN 500 MG, POWDER FOR SOLUTION FOR INFUSION [Suspect]
     Active Substance: VANCOMYCIN
     Indication: ANTIBIOTIC PROPHYLAXIS
     Dosage: 2 G, QD
     Route: 042
     Dates: start: 20180315, end: 20180316
  6. ATROPINE. [Suspect]
     Active Substance: ATROPINE
     Indication: PRODUCT USED FOR UNKNOWN INDICATION
     Dosage: 0.5 MG, UNK
     Route: 042
     Dates: start: 20180315, end: 20180315
  7. NAROPEINE [Concomitant]
     Active Substance: ROPIVACAINE HYDROCHLORIDE
     Indication: ANAESTHESIA
     Dosage: UNK
     Route: 042
     Dates: start: 20180315, end: 20180315
  8. OXYNORM [Suspect]
     Active Substance: OXYCODONE HYDROCHLORIDE
     Indication: POSTOPERATIVE ANALGESIA
     Dosage: UNK
     Dates: start: 20180315, end: 20180315
  9. CISATRACURIUM ACCORD [Concomitant]
     Active Substance: CISATRACURIUM BESYLATE
     Indication: GENERAL ANAESTHESIA
     Dosage: 14 MG, UNK
     Route: 042
     Dates: start: 20180315, end: 20180315
  10. EXACYL [Suspect]
     Active Substance: TRANEXAMIC ACID
     Indication: SURGERY
     Dosage: 1 G, UNK
     Route: 042
     Dates: start: 20180315, end: 20180315
  11. PROPOFOL FRESENIUS [Concomitant]
     Active Substance: PROPOFOL
     Indication: GENERAL ANAESTHESIA
     Dosage: 350 MG, UNK
     Route: 042
     Dates: start: 20180315, end: 20180315
  12. ELIQUIS [Concomitant]
     Active Substance: APIXABAN
     Indication: KNEE ARTHROPLASTY
     Dosage: 5 MG, QD
     Route: 048
     Dates: start: 20180316, end: 20180319

REACTIONS (2)
  - Dermatitis exfoliative generalised [Recovered/Resolved]
  - Toxic skin eruption [Recovered/Resolved]

NARRATIVE: CASE EVENT DATE: 20180316
